FAERS Safety Report 25764370 (Version 1)
Quarter: 2025Q3

REPORT INFORMATION
  Report Type: Spontaneous
  Country: US (occurrence: US)
  Receive Date: 20250905
  Receipt Date: 20250905
  Transmission Date: 20251021
  Serious: No
  Sender: DOMPE FARMACEUTICI
  Company Number: US-FARMAPROD-202501-0295

PATIENT
  Sex: Male

DRUGS (29)
  1. OXERVATE [Suspect]
     Active Substance: CENEGERMIN-BKBJ
     Indication: Neurotrophic keratopathy
     Route: 047
     Dates: start: 20250113
  2. GENTEAL TEARS SEVERE [Concomitant]
     Active Substance: HYPROMELLOSE 2910 (4000 MPA.S)
  3. SPIRONOLACTONE [Concomitant]
     Active Substance: SPIRONOLACTONE
  4. POLYETHYLENE GLYCOL 3350 [Concomitant]
     Active Substance: POLYETHYLENE GLYCOL 3350
  5. ONDANSETRON HYDROCHLORIDE [Concomitant]
     Active Substance: ONDANSETRON HYDROCHLORIDE
  6. VITAMIN D3 [Concomitant]
     Active Substance: CHOLECALCIFEROL
  7. POTASSIUM CHLORIDE [Concomitant]
     Active Substance: POTASSIUM CHLORIDE
  8. FINASTERIDE [Concomitant]
     Active Substance: FINASTERIDE
  9. OZEMPIC [Concomitant]
     Active Substance: SEMAGLUTIDE
  10. ENTRESTO [Concomitant]
     Active Substance: SACUBITRIL\VALSARTAN
  11. TAMSULOSIN HYDROCHLORIDE [Concomitant]
     Active Substance: TAMSULOSIN HYDROCHLORIDE
  12. OXYCODONE AND ACETAMINOPHEN [Concomitant]
     Active Substance: ACETAMINOPHEN\OXYCODONE HYDROCHLORIDE
  13. ASPIRIN [Concomitant]
     Active Substance: ASPIRIN
  14. BUSPIRONE HCL [Concomitant]
     Active Substance: BUSPIRONE HYDROCHLORIDE
  15. KAPSPARGO [Concomitant]
     Active Substance: METOPROLOL SUCCINATE
  16. FARXIGA [Concomitant]
     Active Substance: DAPAGLIFLOZIN PROPANEDIOL
  17. HYPROMELLOSE, UNSPECIFIED [Concomitant]
     Active Substance: HYPROMELLOSE, UNSPECIFIED
  18. SOTALOL [Concomitant]
     Active Substance: SOTALOL
  19. ELIQUIS [Concomitant]
     Active Substance: APIXABAN
  20. NITROGLYCERIN [Concomitant]
     Active Substance: NITROGLYCERIN
  21. FERROUS SULFATE [Concomitant]
     Active Substance: FERROUS SULFATE
  22. LIPITOR [Concomitant]
     Active Substance: ATORVASTATIN CALCIUM
  23. LIPITOR [Concomitant]
     Active Substance: ATORVASTATIN CALCIUM
  24. VALACYCLOVIR [Concomitant]
     Active Substance: VALACYCLOVIR HYDROCHLORIDE
  25. VICTOZA [Concomitant]
     Active Substance: LIRAGLUTIDE
  26. DICLOFENAC SODIUM [Concomitant]
     Active Substance: DICLOFENAC SODIUM
  27. PREDNISOLONE ACETATE [Concomitant]
     Active Substance: PREDNISOLONE ACETATE
  28. MOXIFLOXACIN [Concomitant]
     Active Substance: MOXIFLOXACIN
  29. PANTOPRAZOLE SODIUM [Concomitant]
     Active Substance: PANTOPRAZOLE SODIUM

REACTIONS (2)
  - Eyelid irritation [Unknown]
  - Eyelid pain [Unknown]
